FAERS Safety Report 4533216-4 (Version None)
Quarter: 2005Q1

REPORT INFORMATION
  Report Type: 
  Country: None (occurrence: None)
  Receive Date: 20041206
  Receipt Date: 20041013
  Transmission Date: 20050727
  Serious: No
  Sender: FDA-Public Use
  Company Number: USA041080991

PATIENT
  Age: 43 Year
  Sex: Female
  Weight: 116 kg

DRUGS (4)
  1. CYMBALTA [Suspect]
     Indication: PAIN
     Dosage: 30 MG DAY
     Dates: start: 20041012
  2. SOMA [Concomitant]
  3. ASPIRIN [Concomitant]
  4. ACETAMINOPHEN [Concomitant]

REACTIONS (2)
  - STOMACH DISCOMFORT [None]
  - VISION BLURRED [None]
